FAERS Safety Report 6005754-9 (Version None)
Quarter: 2008Q4

REPORT INFORMATION
  Report Type: 
  Country: None (occurrence: None)
  Receive Date: 20081215
  Receipt Date: 20081205
  Transmission Date: 20090506
  Serious: Yes (Other)
  Sender: FDA-Public Use
  Company Number: TCI2008A05501

PATIENT
  Age: 60 Year
  Sex: Male

DRUGS (5)
  1. LANSAP 400 (LANSOPRAZOLE, CLARITHROMYCIN, AMOXICILLIN) (PREPARATION FO [Suspect]
     Indication: HELICOBACTER INFECTION
     Dosage: 1 CARD (0.5 CARD, 2 IN 1 D) PER ORAL
     Route: 048
     Dates: start: 20081022, end: 20081029
  2. NEORAL [Concomitant]
  3. CELLCEPT (MYCOPHENOLATE MOFETIL) (CAPSULES) [Concomitant]
  4. FASTIC (NATEGLINIDE) (TABLETS) [Concomitant]
  5. ADALAT CR (NIFEDIPINE) (TABLETS) [Concomitant]

REACTIONS (3)
  - FACE OEDEMA [None]
  - URINE OUTPUT DECREASED [None]
  - WEIGHT INCREASED [None]
